FAERS Safety Report 6336023-5 (Version None)
Quarter: 2009Q3

REPORT INFORMATION
  Report Type: 
  Country: None (occurrence: None)
  Receive Date: 20090828
  Receipt Date: 20090818
  Transmission Date: 20100115
  Serious: Yes (Death)
  Sender: FDA-Public Use
  Company Number: ADR13842009

PATIENT
  Age: 69 Year
  Sex: Female

DRUGS (7)
  1. CITALOPRAM HYDROBROMIDE [Suspect]
     Indication: MAJOR DEPRESSION
     Dosage: 40MG ORAL
     Route: 048
  2. AMISULPRIDE [Concomitant]
  3. BENDROLUMETHIAZIDE [Concomitant]
  4. BISOPROLOL [Concomitant]
  5. LISINOPRIL [Concomitant]
  6. PRIADEL [Concomitant]
  7. SIMVASTATIN [Concomitant]

REACTIONS (3)
  - CARDIAC VENTRICULAR DISORDER [None]
  - HYPERTENSIVE HEART DISEASE [None]
  - SCAR [None]
